FAERS Safety Report 24960743 (Version 1)
Quarter: 2025Q1

REPORT INFORMATION
  Report Type: Spontaneous
  Country: US (occurrence: None)
  Receive Date: 20250211
  Receipt Date: 20250211
  Transmission Date: 20250408
  Serious: Yes (Disabling)
  Sender: FDA-CTU
  Company Number: None

PATIENT
  Age: 31 Year
  Sex: Male
  Weight: 90 kg

DRUGS (6)
  1. OMEPRAZOLE [Suspect]
     Active Substance: OMEPRAZOLE
  2. ZYPREXA [Concomitant]
     Active Substance: OLANZAPINE
  3. LAMICTAL [Concomitant]
     Active Substance: LAMOTRIGINE
  4. COGENTIN [Concomitant]
     Active Substance: BENZTROPINE MESYLATE
  5. Daily Men^s Vitamin Supplement [Concomitant]
  6. DIETARY SUPPLEMENT [Concomitant]
     Active Substance: DIETARY SUPPLEMENT

REACTIONS (3)
  - Gastrointestinal infection [None]
  - Haemorrhoids [None]
  - Anal fissure [None]

NARRATIVE: CASE EVENT DATE: 20080701
